FAERS Safety Report 16656052 (Version 1)
Quarter: 2019Q3

REPORT INFORMATION
  Report Type: Spontaneous
  Country: US (occurrence: US)
  Receive Date: 20190731
  Receipt Date: 20190731
  Transmission Date: 20191004
  Serious: Yes (Other)
  Sender: FDA-Public Use
  Company Number: None

PATIENT
  Age: 48 Year
  Weight: 60.75 kg

DRUGS (9)
  1. AMITRYPTILINE [Concomitant]
     Active Substance: AMITRIPTYLINE
  2. IMITREX [Concomitant]
     Active Substance: SUMATRIPTAN SUCCINATE
  3. AMERGE [Concomitant]
     Active Substance: NARATRIPTAN HYDROCHLORIDE
  4. MAGNESIUM GLYCINATE [Concomitant]
     Active Substance: MAGNESIUM GLYCINATE
  5. VITAMIN D3 [Concomitant]
     Active Substance: CHOLECALCIFEROL
  6. EMGALITY [Suspect]
     Active Substance: GALCANEZUMAB-GNLM
     Indication: MIGRAINE
     Dosage: ?          QUANTITY:2 INJECTION(S);OTHER FREQUENCY:ONCE A MONTH;OTHER ROUTE:INJECTED INTO EACH THIGH?
     Dates: start: 20190730, end: 20190730
  7. TOPAMAX [Concomitant]
     Active Substance: TOPIRAMATE
  8. RELPAX [Concomitant]
     Active Substance: ELETRIPTAN HYDROBROMIDE
  9. FISH OIL [Concomitant]
     Active Substance: FISH OIL

REACTIONS (10)
  - Nausea [None]
  - Flushing [None]
  - Feeling hot [None]
  - Hyperhidrosis [None]
  - Pallor [None]
  - Blood pressure decreased [None]
  - Malaise [None]
  - Feeling abnormal [None]
  - Dizziness [None]
  - Defaecation urgency [None]

NARRATIVE: CASE EVENT DATE: 20190730
